FAERS Safety Report 21336231 (Version 1)
Quarter: 2022Q3

REPORT INFORMATION
  Report Type: Spontaneous
  Country: US (occurrence: None)
  Receive Date: 20220914
  Receipt Date: 20220914
  Transmission Date: 20221026
  Serious: Yes (Hospitalization)
  Sender: FDA-Public Use
  Company Number: None

PATIENT
  Age: 43 Year
  Sex: Female

DRUGS (1)
  1. AMBRISENTAN [Suspect]
     Active Substance: AMBRISENTAN
     Indication: Pulmonary arterial hypertension
     Dosage: FREQUENCY : DAILY;?
     Route: 048
     Dates: start: 20210427, end: 20220615

REACTIONS (10)
  - Hallucination [None]
  - Fall [None]
  - Pain in extremity [None]
  - Abdominal pain lower [None]
  - Urinary tract infection [None]
  - Demyelinating polyneuropathy [None]
  - Neurosarcoidosis [None]
  - Vasculitis [None]
  - Paraneoplastic syndrome [None]
  - Therapy interrupted [None]

NARRATIVE: CASE EVENT DATE: 20220829
